FAERS Safety Report 5240091-1 (Version None)
Quarter: 2007Q1

REPORT INFORMATION
  Report Type: 
  Country: None (occurrence: None)
  Receive Date: 20070216
  Receipt Date: 20070207
  Transmission Date: 20070707
  Serious: Yes (Other)
  Sender: FDA-Public Use
  Company Number: US-PFIZER INC-2007010389

PATIENT
  Sex: Female
  Weight: 62.1 kg

DRUGS (6)
  1. CHANTIX [Suspect]
     Indication: EX-SMOKER
  2. KLONOPIN [Concomitant]
  3. ABILIFY [Concomitant]
  4. HALDOL [Concomitant]
  5. NEURONTIN [Concomitant]
  6. LEXAPRO [Concomitant]

REACTIONS (2)
  - DEPRESSION [None]
  - NAUSEA [None]
